FAERS Safety Report 9114387 (Version 1)
Quarter: 2013Q1

REPORT INFORMATION
  Report Type: Spontaneous
  Country: JP (occurrence: JP)
  Receive Date: 20130208
  Receipt Date: 20130208
  Transmission Date: 20140127
  Serious: Yes (Life-Threatening)
  Sender: FDA-Public Use
  Company Number: JP-009507513-1204USA02795

PATIENT
  Age: 53 Year
  Sex: Male
  Weight: 82 kg

DRUGS (12)
  1. JANUVIA [Suspect]
     Dosage: 50 MG, QD
     Route: 048
     Dates: start: 20120329, end: 20120414
  2. HUMALOG [Concomitant]
     Dosage: 6 (UNDER (1000 UNITS), TID
     Route: 058
     Dates: start: 20120330
  3. HUMALOG [Concomitant]
     Dosage: 8 DF, TID
     Route: 058
     Dates: end: 20120329
  4. METGLUCO [Concomitant]
     Dosage: 250 MG, BID
     Route: 048
     Dates: start: 20120105
  5. WARFARIN [Concomitant]
     Dosage: 1.5 MG, QD
     Route: 048
  6. KINEDAK [Concomitant]
     Dosage: 50 MG, TID
     Route: 048
  7. LYRICA [Concomitant]
     Dosage: 75 MG, BID
     Route: 048
  8. HALFDIGOXIN [Concomitant]
     Dosage: 0.125 MG, QD
     Route: 048
  9. LENDORMIN [Concomitant]
     Dosage: 0.25 MG, QD
     Route: 048
  10. SENNARIDE [Concomitant]
     Dosage: 12 MG, QD
     Route: 048
  11. LANTUS [Concomitant]
     Dosage: 9 (UNDER 1000 UNIT)
     Route: 058
     Dates: start: 20120330
  12. LANTUS [Concomitant]
     Dosage: 12 DF, QD
     Route: 058
     Dates: end: 20120329

REACTIONS (1)
  - Hypoglycaemia [Recovered/Resolved]
